FAERS Safety Report 21535969 (Version 1)
Quarter: 2022Q4

REPORT INFORMATION
  Report Type: Spontaneous
  Country: US (occurrence: US)
  Receive Date: 20221101
  Receipt Date: 20221101
  Transmission Date: 20230112
  Serious: No
  Sender: FDA-Public Use
  Company Number: US-AMGEN-USASP2022180361

PATIENT
  Age: 7 Year
  Sex: Female

DRUGS (12)
  1. RITUXIMAB [Suspect]
     Active Substance: RITUXIMAB
     Indication: Obliterative bronchiolitis
     Dosage: 750 MILLIGRAM, TWO DOSES
     Route: 065
  2. RITUXIMAB [Suspect]
     Active Substance: RITUXIMAB
     Indication: Follicular dendritic cell sarcoma
  3. RITUXIMAB [Suspect]
     Active Substance: RITUXIMAB
     Indication: Paraneoplastic pemphigus
  4. RITUXIMAB [Suspect]
     Active Substance: RITUXIMAB
     Indication: Myasthenia gravis
  5. METHYLPREDNISOLONE [Concomitant]
     Active Substance: METHYLPREDNISOLONE
     Indication: Obliterative bronchiolitis
     Dosage: UNK
  6. METHYLPREDNISOLONE [Concomitant]
     Active Substance: METHYLPREDNISOLONE
     Indication: Follicular dendritic cell sarcoma
  7. METHYLPREDNISOLONE [Concomitant]
     Active Substance: METHYLPREDNISOLONE
     Indication: Myasthenia gravis
  8. METHYLPREDNISOLONE [Concomitant]
     Active Substance: METHYLPREDNISOLONE
     Indication: Paraneoplastic pemphigus
  9. Immunoglobulin [Concomitant]
     Indication: Obliterative bronchiolitis
     Dosage: 2 GRAM PER KILOGRAM, TWO DOSES
  10. Immunoglobulin [Concomitant]
     Indication: Paraneoplastic pemphigus
  11. Immunoglobulin [Concomitant]
     Indication: Myasthenia gravis
  12. Immunoglobulin [Concomitant]
     Indication: Follicular dendritic cell sarcoma

REACTIONS (2)
  - Drug effective for unapproved indication [Unknown]
  - Off label use [Unknown]
